FAERS Safety Report 23191613 (Version 1)
Quarter: 2023Q4

REPORT INFORMATION
  Report Type: Other
  Country: US (occurrence: US)
  Receive Date: 20231116
  Receipt Date: 20231116
  Transmission Date: 20240109
  Serious: No
  Sender: FDA-Public Use
  Company Number: US-TRAVERE-2023TVT00611

PATIENT
  Age: 40 Year
  Sex: Female

DRUGS (11)
  1. FILSPARI [Suspect]
     Active Substance: SPARSENTAN
     Indication: IgA nephropathy
     Route: 048
     Dates: start: 20230810
  2. AIRBORNE [Concomitant]
     Active Substance: HERBALS\MINERALS\VITAMINS
  3. TARPEYO [Concomitant]
     Active Substance: BUDESONIDE
  4. LOVAZA [Concomitant]
     Active Substance: OMEGA-3-ACID ETHYL ESTERS
  5. ASPIRIN [Concomitant]
     Active Substance: ASPIRIN
  6. LORATADINE [Concomitant]
     Active Substance: LORATADINE
  7. LEVOTHYROXINE SODIUM [Concomitant]
     Active Substance: LEVOTHYROXINE SODIUM
  8. LEXAPRO [Concomitant]
     Active Substance: ESCITALOPRAM OXALATE
  9. FARXIGA [Concomitant]
     Active Substance: DAPAGLIFLOZIN PROPANEDIOL
  10. MOUNJARO [Concomitant]
     Active Substance: TIRZEPATIDE
  11. LASIX [Concomitant]
     Active Substance: FUROSEMIDE

REACTIONS (3)
  - Asthenia [Recovered/Resolved]
  - Dehydration [Recovered/Resolved]
  - Fatigue [Recovered/Resolved]
